FAERS Safety Report 7775642-6 (Version None)
Quarter: 2011Q3

REPORT INFORMATION
  Report Type: 
  Country: None (occurrence: None)
  Receive Date: 20110923
  Receipt Date: 20110915
  Transmission Date: 20111222
  Serious: Yes (Hospitalization)
  Sender: FDA-Public Use
  Company Number: US-GLAXOSMITHKLINE-A0900225A

PATIENT
  Age: 79 Year
  Sex: Female
  Weight: 52.6 kg

DRUGS (1)
  1. FLOLAN [Suspect]
     Indication: COR PULMONALE CHRONIC
     Dosage: 31NGKM CONTINUOUS
     Dates: start: 20000125

REACTIONS (3)
  - CONTUSION [None]
  - FALL [None]
  - CELLULITIS [None]
